FAERS Safety Report 19914048 (Version 2)
Quarter: 2021Q4

REPORT INFORMATION
  Report Type: Spontaneous
  Country: US (occurrence: US)
  Receive Date: 20211004
  Receipt Date: 20211207
  Transmission Date: 20220303
  Serious: Yes (Other)
  Sender: FDA-Public Use
  Company Number: ALC2021US005219

PATIENT
  Sex: Female

DRUGS (1)
  1. PATADAY ONCE DAILY RELIEF [Suspect]
     Active Substance: OLOPATADINE HYDROCHLORIDE
     Indication: Dry eye
     Dosage: UNK
     Route: 047

REACTIONS (5)
  - Chemical burns of eye [Recovered/Resolved]
  - Product dispensing error [Unknown]
  - Wrong product administered [Unknown]
  - Eye pain [Recovered/Resolved]
  - Eye irritation [Recovered/Resolved]

NARRATIVE: CASE EVENT DATE: 20210910
